FAERS Safety Report 5501402-2 (Version None)
Quarter: 2007Q4

REPORT INFORMATION
  Report Type: 
  Country: None (occurrence: None)
  Receive Date: 20071018
  Receipt Date: 20070308
  Transmission Date: 20080405
  Serious: Yes (Death)
  Sender: FDA-Public Use
  Company Number: 2007020075

PATIENT
  Age: 49 Year
  Sex: Male

DRUGS (4)
  1. NEURONTIN [Suspect]
     Indication: RESTLESS LEGS SYNDROME
     Dosage: 1800 MG (DAILY), ORAL
     Route: 048
     Dates: start: 20011001, end: 20020401
  2. CARDURA [Concomitant]
  3. VICODIN [Concomitant]
  4. CLONAZEPAM [Concomitant]

REACTIONS (1)
  - COMPLETED SUICIDE [None]
